FAERS Safety Report 6107577-9 (Version None)
Quarter: 2009Q1

REPORT INFORMATION
  Report Type: 
  Country: None (occurrence: None)
  Receive Date: 20090309
  Receipt Date: 20090226
  Transmission Date: 20090719
  Serious: Yes (Hospitalization, Other)
  Sender: FDA-Public Use
  Company Number: ES-BAXTER-2009BH003321

PATIENT
  Age: 63 Year
  Sex: Male
  Weight: 60 kg

DRUGS (3)
  1. TISSUCOL/TISSEEL DUO STIM4 [Suspect]
     Indication: HAEMOSTASIS
     Route: 061
     Dates: start: 20080728, end: 20080728
  2. TACHOSIL [Suspect]
     Indication: HAEMOSTASIS
     Route: 061
     Dates: start: 20080728, end: 20080728
  3. ANTIBIOTICS [Concomitant]

REACTIONS (3)
  - COAGULOPATHY [None]
  - FACTOR V INHIBITION [None]
  - GASTROINTESTINAL HAEMORRHAGE [None]
